FAERS Safety Report 7362640-X (Version None)
Quarter: 2011Q1

REPORT INFORMATION
  Report Type: 
  Country: None (occurrence: None)
  Receive Date: 20110320
  Receipt Date: 20110309
  Transmission Date: 20110831
  Serious: Yes (Hospitalization)
  Sender: FDA-Public Use
  Company Number: US-SANOFI-AVENTIS-2011SA015599

PATIENT
  Age: 78 Year
  Sex: Male
  Weight: 101.3 kg

DRUGS (11)
  1. ASPIRIN [Concomitant]
  2. METFORMIN [Concomitant]
  3. COLCHICINE [Concomitant]
  4. PLAVIX [Suspect]
     Indication: ANTIPLATELET THERAPY
     Route: 048
  5. INDOMETHACIN [Concomitant]
  6. LIPITOR [Concomitant]
  7. GLIPIZIDE [Concomitant]
  8. HYDROCHLOROTHIAZIDE [Concomitant]
  9. CELEBREX [Concomitant]
  10. MULTI-VITAMINS [Concomitant]
  11. ALTACE [Concomitant]

REACTIONS (2)
  - DEVICE OCCLUSION [None]
  - ARRHYTHMIA [None]
